FAERS Safety Report 20515805 (Version 1)
Quarter: 2022Q1

REPORT INFORMATION
  Report Type: Spontaneous
  Country: US (occurrence: US)
  Receive Date: 20220224
  Receipt Date: 20220224
  Transmission Date: 20220423
  Serious: No
  Sender: FDA-Public Use
  Company Number: US-BANNER LIFE SCIENCES, LLC-2022BAN000010

PATIENT

DRUGS (1)
  1. BAFIERTAM [Suspect]
     Active Substance: MONOMETHYL FUMARATE
     Indication: Multiple sclerosis
     Dosage: 95MG TWICE DAILY FOR 1 WEEK THEN DAILY
     Route: 048
     Dates: start: 20211203, end: 20210103

REACTIONS (4)
  - Inflammation [Unknown]
  - Pigmentation disorder [Unknown]
  - Hot flush [Unknown]
  - Rash [Unknown]
